FAERS Safety Report 5855084-0 (Version None)
Quarter: 2008Q3

REPORT INFORMATION
  Report Type: 
  Country: None (occurrence: None)
  Receive Date: 20080822
  Receipt Date: 20080626
  Transmission Date: 20090109
  Serious: No
  Sender: FDA-Public Use
  Company Number: US-ABBOTT-08P-163-0460057-00

PATIENT
  Sex: Female
  Weight: 77.18 kg

DRUGS (4)
  1. SYNTHROID [Suspect]
     Indication: HYPOTHYROIDISM
     Route: 048
  2. SYNTHROID [Suspect]
     Route: 048
     Dates: end: 20070701
  3. SYNTHROID [Suspect]
     Route: 048
     Dates: start: 20070701, end: 20071201
  4. SYNTHROID [Suspect]
     Route: 048
     Dates: start: 20071201

REACTIONS (1)
  - THYROID FUNCTION TEST ABNORMAL [None]
